FAERS Safety Report 6516186-9 (Version None)
Quarter: 2009Q4

REPORT INFORMATION
  Report Type: 
  Country: None (occurrence: None)
  Receive Date: 20091223
  Receipt Date: 20091215
  Transmission Date: 20100525
  Serious: Yes (Hospitalization)
  Sender: FDA-Public Use
  Company Number: DE-ELI_LILLY_AND_COMPANY-DE200912003647

PATIENT
  Sex: Female
  Weight: 134 kg

DRUGS (4)
  1. GEMCITABINE HCL [Suspect]
     Indication: BREAST CANCER
     Dosage: 1960.3 MG, UNK
     Route: 042
     Dates: start: 20091116, end: 20091208
  2. DOCETAXEL [Suspect]
     Indication: BREAST CANCER
     Dosage: 151.75 MG, UNK
     Route: 042
     Dates: start: 20091116, end: 20091208
  3. DEXAMETHASONE TAB [Concomitant]
     Indication: PROPHYLAXIS
     Dosage: UNK, UNK
     Route: 042
     Dates: start: 20091115, end: 20091208
  4. ZOFRAN [Concomitant]
     Indication: PROPHYLAXIS
     Dosage: 8 MG, UNK
     Route: 042
     Dates: start: 20091116, end: 20091208

REACTIONS (2)
  - ERYSIPELAS [None]
  - THROMBOPHLEBITIS [None]
